FAERS Safety Report 6844246-1 (Version None)
Quarter: 2010Q2

REPORT INFORMATION
  Report Type: 
  Country: None (occurrence: None)
  Receive Date: 20100629
  Receipt Date: 20100408
  Transmission Date: 20101027
  Serious: Yes (Other)
  Sender: FDA-Public Use
  Company Number: US-WYE-H14628710

PATIENT
  Age: 45 Year
  Sex: Female
  Weight: 127.12 kg

DRUGS (4)
  1. PRISTIQ [Suspect]
     Indication: FIBROMYALGIA
     Dosage: 50 MG 1X PER 1 DAY
     Dates: start: 20100408
  2. MELOXICAM [Concomitant]
  3. NORCO [Concomitant]
  4. CYMBALTA [Concomitant]

REACTIONS (1)
  - MEDICATION RESIDUE [None]
